FAERS Safety Report 8869247 (Version 1)
Quarter: 2012Q4

REPORT INFORMATION
  Report Type: 
  Country: US (occurrence: US)
  Receive Date: 20121023
  Receipt Date: 20121023
  Transmission Date: 20130627
  Serious: Yes (Other)
  Sender: FDA-Public Use
  Company Number: US-AMGEN-USASP2012054260

PATIENT
  Sex: Male
  Weight: 46.26 kg

DRUGS (2)
  1. ENBREL [Suspect]
     Indication: JUVENILE ARTHRITIS
     Dosage: 25 mg, qwk
     Route: 058
  2. ENBREL [Suspect]
     Indication: UVEITIS

REACTIONS (2)
  - Uveitis [Unknown]
  - Therapeutic response decreased [Unknown]
